FAERS Safety Report 7978334-3 (Version None)
Quarter: 2011Q4

REPORT INFORMATION
  Report Type: 
  Country: None (occurrence: None)
  Receive Date: 20111206
  Receipt Date: 20111124
  Transmission Date: 20120403
  Serious: Yes (Hospitalization)
  Sender: FDA-Public Use
  Company Number: 2011SP024236

PATIENT
  Age: 43 Year
  Sex: Male

DRUGS (3)
  1. OMEPRAZOLE [Concomitant]
  2. DESLORATADINE [Suspect]
     Dosage: 1 DF;QD;PO
     Route: 048
     Dates: start: 20110201, end: 20110401
  3. VOLTAREN [Concomitant]

REACTIONS (5)
  - CONDITION AGGRAVATED [None]
  - FATIGUE [None]
  - STRESS [None]
  - DERMATITIS ATOPIC [None]
  - SOMNOLENCE [None]
